FAERS Safety Report 24644147 (Version 1)
Quarter: 2024Q4

REPORT INFORMATION
  Report Type: Report from Study
  Country: US (occurrence: US)
  Receive Date: 20241120
  Receipt Date: 20241120
  Transmission Date: 20250114
  Serious: Yes (Other)
  Sender: ABBVIE
  Company Number: US-ABBVIE-6005941

PATIENT

DRUGS (1)
  1. RINVOQ [Suspect]
     Active Substance: UPADACITINIB
     Indication: Ankylosing spondylitis
     Route: 048

REACTIONS (7)
  - Tendon rupture [Unknown]
  - Postoperative wound infection [Unknown]
  - Arthritis [Unknown]
  - Haemorrhage [Unknown]
  - Wound complication [Unknown]
  - Balance disorder [Unknown]
  - Fibromyalgia [Unknown]
